FAERS Safety Report 14034243 (Version 1)
Quarter: 2017Q4

REPORT INFORMATION
  Report Type: Spontaneous
  Country: US (occurrence: US)
  Receive Date: 20171003
  Receipt Date: 20171003
  Transmission Date: 20180321
  Serious: No
  Sender: FDA-Public Use
  Company Number: US-TEVA-779484ACC

PATIENT
  Sex: Male

DRUGS (1)
  1. CLONAZEPAM. [Suspect]
     Active Substance: CLONAZEPAM
     Route: 048

REACTIONS (27)
  - Dyspnoea [Unknown]
  - Dizziness [Unknown]
  - Depressed mood [Unknown]
  - Irritability [Unknown]
  - Decreased appetite [Unknown]
  - Disturbance in attention [Unknown]
  - Cough [Unknown]
  - Coordination abnormal [Unknown]
  - Fatigue [Unknown]
  - Chills [Unknown]
  - Depression [Unknown]
  - Tremor [Unknown]
  - Pain [Unknown]
  - Ear congestion [Unknown]
  - Headache [Unknown]
  - Rhinorrhoea [Unknown]
  - Sneezing [Unknown]
  - Decreased interest [Unknown]
  - Gait disturbance [Unknown]
  - Oropharyngeal pain [Unknown]
  - Balance disorder [Unknown]
  - Pyrexia [Unknown]
  - Nasal congestion [Unknown]
  - Aphonia [Unknown]
  - Somnolence [Unknown]
  - Insomnia [Unknown]
  - Asthenia [Unknown]
